FAERS Safety Report 11696266 (Version 2)
Quarter: 2017Q2

REPORT INFORMATION
  Report Type: Spontaneous
  Country: US (occurrence: US)
  Receive Date: 20151104
  Receipt Date: 20170506
  Transmission Date: 20170829
  Serious: No
  Sender: FDA-Public Use
  Company Number: US-CELGENEUS-USA-2015107675

PATIENT
  Age: 6 Decade
  Sex: Male

DRUGS (1)
  1. OTEZLA [Suspect]
     Active Substance: APREMILAST
     Indication: PSORIASIS
     Dosage: 60 MILLIGRAM
     Route: 048
     Dates: start: 201509

REACTIONS (2)
  - Weight decreased [Not Recovered/Not Resolved]
  - Tremor [Recovered/Resolved]

NARRATIVE: CASE EVENT DATE: 2015
